FAERS Safety Report 9358222 (Version 1)
Quarter: 2013Q2

REPORT INFORMATION
  Report Type: Spontaneous
  Country: US (occurrence: US)
  Receive Date: 20130620
  Receipt Date: 20130620
  Transmission Date: 20140414
  Serious: No
  Sender: FDA-Public Use
  Company Number: US-US-EMD SERONO, INC.-7200686

PATIENT
  Sex: Female

DRUGS (2)
  1. REBIF [Suspect]
     Indication: PRODUCT USED FOR UNKNOWN INDICATION
     Route: 058
  2. REBIF [Suspect]
     Route: 058

REACTIONS (7)
  - Pleurisy [Unknown]
  - Hypokinesia [Unknown]
  - Drug intolerance [Unknown]
  - Back pain [Unknown]
  - Arthralgia [Unknown]
  - Headache [Recovering/Resolving]
  - Chills [Recovering/Resolving]
